FAERS Safety Report 8781250 (Version 1)
Quarter: 2012Q4

REPORT INFORMATION
  Report Type: 
  Country: US (occurrence: US)
  Receive Date: 20120913
  Receipt Date: 20120913
  Transmission Date: 20130627
  Serious: No
  Sender: FDA-Public Use
  Company Number: US-009507513-1208USA007064

PATIENT

DRUGS (6)
  1. SINEMET [Suspect]
     Indication: PARKINSON^S DISEASE
     Dosage: 25/100 mg, qid
     Route: 048
     Dates: start: 2007
  2. HYDRALAZINE [Concomitant]
  3. PRAVASTATIN SODIUM [Concomitant]
  4. ZOLOFT [Concomitant]
  5. ASPIRIN [Concomitant]
  6. VITAMINS (UNSPECIFIED) [Concomitant]
     Dosage: UNK, qd

REACTIONS (3)
  - Feeling abnormal [Not Recovered/Not Resolved]
  - Cognitive disorder [Not Recovered/Not Resolved]
  - Decreased interest [Not Recovered/Not Resolved]
